FAERS Safety Report 7034324-9 (Version None)
Quarter: 2010Q4

REPORT INFORMATION
  Report Type: 
  Country: None (occurrence: None)
  Receive Date: 20101008
  Receipt Date: 20100923
  Transmission Date: 20110411
  Serious: Yes (Other)
  Sender: FDA-Public Use
  Company Number: PHEH2008US07357

PATIENT
  Sex: Female
  Weight: 69.388 kg

DRUGS (33)
  1. ZOMETA [Suspect]
     Dosage: 4 MG, QMO
     Route: 042
     Dates: start: 20050701, end: 20070726
  2. CHEMOTHERAPEUTICS NOS [Concomitant]
  3. FEMARA [Concomitant]
     Dosage: 2.5MG
  4. ROBAXIN [Concomitant]
     Dosage: UNK
  5. PERCOCET [Concomitant]
     Dosage: UNK
  6. MS CONTIN [Concomitant]
     Dosage: UNK
  7. ADVIL LIQUI-GELS [Concomitant]
  8. DURAGESIC-100 [Concomitant]
  9. FASLODEX [Concomitant]
     Dosage: UNK
     Dates: start: 20080901
  10. ZOLADEX [Concomitant]
  11. BENADRYL ^ACHE^ [Concomitant]
  12. COMPAZINE [Concomitant]
  13. TYLENOL [Concomitant]
  14. SENOKOT [Concomitant]
  15. STOMATOLOGICALS, MOUTH PREPARATIONS [Concomitant]
  16. CALCIUM [Concomitant]
  17. VITAMIN D [Concomitant]
  18. CELEBREX [Concomitant]
  19. DECADRON [Concomitant]
  20. TAXOL [Concomitant]
  21. CARBOPLATIN [Concomitant]
  22. ARANESP [Concomitant]
  23. PROCRIT                            /00909301/ [Concomitant]
  24. OXYCONTIN [Concomitant]
  25. OXYCODONE [Concomitant]
  26. ASCORBIC ACID [Concomitant]
  27. VITAMIN E [Concomitant]
  28. FISH OIL [Concomitant]
  29. VITAMIN B6 [Concomitant]
  30. VICODIN [Concomitant]
  31. FLAGYL [Concomitant]
  32. DIAZEPAM [Concomitant]
  33. MEPROZINE [Concomitant]

REACTIONS (35)
  - ANAEMIA [None]
  - ANXIETY [None]
  - BACK PAIN [None]
  - BONE DENSITY DECREASED [None]
  - BONE DISORDER [None]
  - BUNDLE BRANCH BLOCK RIGHT [None]
  - DEBRIDEMENT [None]
  - DENTAL CARIES [None]
  - FISTULA DISCHARGE [None]
  - GENERAL PHYSICAL HEALTH DETERIORATION [None]
  - GINGIVAL DISORDER [None]
  - GINGIVAL INFECTION [None]
  - HAEMATURIA [None]
  - HYPOAESTHESIA FACIAL [None]
  - JAW FRACTURE [None]
  - JAW OPERATION [None]
  - JOINT ARTHROPLASTY [None]
  - LOOSE TOOTH [None]
  - MASTECTOMY [None]
  - METASTASES TO BONE [None]
  - MICTURITION URGENCY [None]
  - OSTEOLYSIS [None]
  - OSTEOMYELITIS [None]
  - OSTEONECROSIS OF JAW [None]
  - OSTEOPENIA [None]
  - OVARIAN CYST [None]
  - PAIN [None]
  - PAIN IN JAW [None]
  - PARAESTHESIA ORAL [None]
  - SPINAL COMPRESSION FRACTURE [None]
  - SPINAL DEFORMITY [None]
  - SURGERY [None]
  - SWELLING [None]
  - TOOTH EXTRACTION [None]
  - VERTEBROPLASTY [None]
